FAERS Safety Report 13561722 (Version 1)
Quarter: 2017Q2

REPORT INFORMATION
  Report Type: Spontaneous
  Country: US (occurrence: US)
  Receive Date: 20170518
  Receipt Date: 20170518
  Transmission Date: 20170830
  Serious: No
  Sender: FDA-Public Use
  Company Number: None

PATIENT
  Age: 65 Year
  Sex: Female
  Weight: 65.7 kg

DRUGS (7)
  1. CEPHALEXIN 500 MG CAPSULES AUROBINDO PHARMA [Suspect]
     Active Substance: CEPHALEXIN
     Indication: CYST
     Dosage: ?          QUANTITY:20 CAPSULE(S);?
     Route: 048
     Dates: start: 20170403, end: 20170409
  2. PROBIOTIC [Concomitant]
     Active Substance: PROBIOTICS NOS
  3. FLONASE [Concomitant]
     Active Substance: FLUTICASONE PROPIONATE
  4. ASPIRIN. [Concomitant]
     Active Substance: ASPIRIN
  5. CEPHALEXIN 500 MG CAPSULES AUROBINDO PHARMA [Suspect]
     Active Substance: CEPHALEXIN
     Indication: FURUNCLE
     Dosage: ?          QUANTITY:20 CAPSULE(S);?
     Route: 048
     Dates: start: 20170403, end: 20170409
  6. MULTI VITAMIN [Concomitant]
     Active Substance: VITAMINS
  7. VITAMINS [Concomitant]
     Active Substance: VITAMINS

REACTIONS (10)
  - Discomfort [None]
  - Ageusia [None]
  - Dysphonia [None]
  - Sinus disorder [None]
  - Rhinorrhoea [None]
  - Cough [None]
  - Parosmia [None]
  - Nasal discomfort [None]
  - Therapy cessation [None]
  - Feeling abnormal [None]

NARRATIVE: CASE EVENT DATE: 20170403
